FAERS Safety Report 7076950-7 (Version None)
Quarter: 2010Q4

REPORT INFORMATION
  Report Type: 
  Country: None (occurrence: None)
  Receive Date: 20101101
  Receipt Date: 20101026
  Transmission Date: 20110411
  Serious: Yes (Death)
  Sender: FDA-Public Use
  Company Number: US-JNJCH-2008001061

PATIENT
  Age: 20 Year
  Sex: Male

DRUGS (3)
  1. PSEUDOEPHEDRINE HCL [Suspect]
     Indication: SUICIDE ATTEMPT
     Dosage: TEXT:UNKNOWN
     Route: 048
  2. IBUPROFEN [Suspect]
     Indication: SUICIDE ATTEMPT
     Dosage: TEXT:UNKNOWN
     Route: 048
  3. ACETYLSALICYLIC ACID [Suspect]
     Indication: SUICIDE ATTEMPT
     Dosage: TEXT:UNKNOWN
     Route: 048

REACTIONS (1)
  - DRUG TOXICITY [None]
